FAERS Safety Report 10181060 (Version 1)
Quarter: 2014Q2

REPORT INFORMATION
  Report Type: Spontaneous
  Country: US (occurrence: US)
  Receive Date: 20140519
  Receipt Date: 20140519
  Transmission Date: 20141212
  Serious: No
  Sender: FDA-Public Use
  Company Number: US-AMGEN INC.-USASP2014022405

PATIENT
  Sex: Female

DRUGS (6)
  1. PROLIA [Suspect]
     Indication: OSTEOPOROSIS POSTMENOPAUSAL
     Dosage: UNK
     Route: 065
     Dates: start: 201308
  2. VITAMIN D                          /00107901/ [Concomitant]
  3. MULTIVITAMIN                       /00097801/ [Concomitant]
  4. XANAX [Concomitant]
     Dosage: UNK UNK, QD
  5. MECLIZINE                          /00072801/ [Concomitant]
     Indication: VERTIGO
     Dosage: UNK
  6. CALCIUM [Concomitant]

REACTIONS (5)
  - Pain [Recovered/Resolved]
  - Food allergy [Unknown]
  - Dyspepsia [Unknown]
  - Chest pain [Unknown]
  - Flatulence [Unknown]
